FAERS Safety Report 5370309-6 (Version None)
Quarter: 2007Q2

REPORT INFORMATION
  Report Type: 
  Country: None (occurrence: None)
  Receive Date: 20070625
  Receipt Date: 20070625
  Transmission Date: 20071010
  Serious: No
  Sender: FDA-Public Use
  Company Number: None

PATIENT
  Age: 92 Year
  Sex: Female
  Weight: 62.1428 kg

DRUGS (2)
  1. BONIVA [Suspect]
     Indication: OSTEOPOROSIS
     Dosage: ONE PO Q MONTH
     Route: 048
     Dates: start: 20070614
  2. HYPERTENSION [Concomitant]

REACTIONS (1)
  - ANGIOEDEMA [None]
